FAERS Safety Report 19731971 (Version 4)
Quarter: 2025Q1

REPORT INFORMATION
  Report Type: Report from Study
  Country: DE (occurrence: DE)
  Receive Date: 20210820
  Receipt Date: 20250327
  Transmission Date: 20250408
  Serious: No
  Sender: TAKEDA
  Company Number: DE-TAKEDA-2021TUS051041

PATIENT
  Age: 55 Year
  Sex: Male

DRUGS (20)
  1. TEDUGLUTIDE [Suspect]
     Active Substance: TEDUGLUTIDE
     Indication: Short-bowel syndrome
     Dosage: 3.89 MILLIGRAM, QD
     Dates: start: 20141119
  2. TEDUGLUTIDE [Suspect]
     Active Substance: TEDUGLUTIDE
  3. TEDUGLUTIDE [Suspect]
     Active Substance: TEDUGLUTIDE
  4. TEDUGLUTIDE [Suspect]
     Active Substance: TEDUGLUTIDE
  5. PROPOFOL [Concomitant]
     Active Substance: PROPOFOL
     Indication: Anaesthesia
     Dosage: 550 MILLIGRAM, QD
     Dates: start: 20210729, end: 20210729
  6. PROPOFOL [Concomitant]
     Active Substance: PROPOFOL
     Indication: Endoscopy
  7. ELECTROLYTES NOS\MINERALS [Concomitant]
     Active Substance: ELECTROLYTES NOS\MINERALS
     Indication: Short-bowel syndrome
     Dosage: UNK UNK, QD
  8. CERNEVIT [Concomitant]
     Active Substance: VITAMINS
     Indication: Short-bowel syndrome
     Dosage: 1 DOSAGE FORM, QD
  9. TEDUGLUTIDE [Concomitant]
     Active Substance: TEDUGLUTIDE
     Indication: Short-bowel syndrome
     Dosage: 2 DOSAGE FORM, QD
  10. PANCRELIPASE [Concomitant]
     Active Substance: PANCRELIPASE
     Indication: Pancreatic enzymes
  11. Omniflora [Concomitant]
     Indication: Probiotic therapy
     Dosage: UNK, BID
  12. LOPERAMIDE [Concomitant]
     Active Substance: LOPERAMIDE
     Indication: Antidiarrhoeal supportive care
     Dosage: 2.00 MILLIGRAM, TID
  13. CALCIUM\CHOLECALCIFEROL [Concomitant]
     Active Substance: CALCIUM\CHOLECALCIFEROL
     Indication: Hypocalcaemia
     Dosage: UNK UNK, BID
     Dates: start: 201507
  14. CALCIUM\CHOLECALCIFEROL [Concomitant]
     Active Substance: CALCIUM\CHOLECALCIFEROL
     Indication: Vitamin supplementation
  15. PANTOPRAZOLE SODIUM [Concomitant]
     Active Substance: PANTOPRAZOLE SODIUM
     Indication: Prophylaxis
     Dosage: 40 MILLIGRAM, BID
     Dates: start: 201111
  16. CHOLESTYRAMINE [Concomitant]
     Active Substance: CHOLESTYRAMINE
     Indication: Diarrhoea
     Dosage: UNK UNK, TID
     Dates: start: 2014
  17. CHOLECALCIFEROL [Concomitant]
     Active Substance: CHOLECALCIFEROL
     Indication: Osteopenia
     Dosage: 20000 INTERNATIONAL UNIT, 1/WEEK
     Dates: start: 201706
  18. MAGNESIUM [Concomitant]
     Active Substance: MAGNESIUM
     Indication: Hypomagnesaemia
     Dosage: 40 MILLIGRAM, TID
     Dates: start: 20191026
  19. CHOLECALCIFEROL [Concomitant]
     Active Substance: CHOLECALCIFEROL
     Indication: Vitamin D deficiency
     Dosage: 1000 INTERNATIONAL UNIT, QD
     Dates: start: 201910
  20. CHOLESTYRAMINE [Concomitant]
     Active Substance: CHOLESTYRAMINE
     Indication: Short-bowel syndrome
     Dosage: 4 GRAM, TID
     Dates: start: 2024

REACTIONS (3)
  - Gastric polyps [Recovered/Resolved]
  - Hiatus hernia [Not Recovered/Not Resolved]
  - Lymphadenopathy [Unknown]

NARRATIVE: CASE EVENT DATE: 20200717
